FAERS Safety Report 11223624 (Version 1)
Quarter: 2015Q2

REPORT INFORMATION
  Report Type: Report from Study
  Country: CA (occurrence: CA)
  Receive Date: 20150629
  Receipt Date: 20150629
  Transmission Date: 20150821
  Serious: Yes (Other)
  Sender: FDA-Public Use
  Company Number: CA-ROCHE-1599494

PATIENT
  Age: 18 Year
  Sex: Female

DRUGS (4)
  1. ACETAMINOPHEN. [Concomitant]
     Active Substance: ACETAMINOPHEN
     Route: 048
     Dates: start: 20150623
  2. METHYLPREDNISOLONE. [Concomitant]
     Active Substance: METHYLPREDNISOLONE
     Route: 042
     Dates: start: 20150623
  3. DIPHENHYDRAMINE HCL [Concomitant]
     Active Substance: DIPHENHYDRAMINE HYDROCHLORIDE
     Route: 048
     Dates: start: 20150623
  4. RITUXAN [Suspect]
     Active Substance: RITUXIMAB
     Indication: HENOCH-SCHONLEIN PURPURA NEPHRITIS
     Dosage: Q15 DAYS X 2 DOSES ONLY
     Route: 042
     Dates: start: 20150623

REACTIONS (3)
  - Anaphylactic reaction [Unknown]
  - Chromaturia [Unknown]
  - Nausea [Unknown]

NARRATIVE: CASE EVENT DATE: 20150623
